FAERS Safety Report 11595239 (Version 29)
Quarter: 2022Q1

REPORT INFORMATION
  Report Type: Other
  Country: CA (occurrence: None)
  Receive Date: 20151006
  Receipt Date: 20220330
  Transmission Date: 20220424
  Serious: Yes (Other)
  Sender: FDA-Public Use
  Company Number: CA-ROCHE-1466793

PATIENT
  Age: 62 Year
  Sex: Female
  Weight: 92 kg

DRUGS (12)
  1. ACTEMRA [Suspect]
     Active Substance: TOCILIZUMAB
     Indication: Rheumatoid arthritis
     Route: 042
     Dates: start: 20140730
  2. ACTEMRA [Suspect]
     Active Substance: TOCILIZUMAB
     Route: 042
     Dates: start: 20160209, end: 20170612
  3. ACTEMRA [Suspect]
     Active Substance: TOCILIZUMAB
     Route: 042
  4. ACTEMRA [Suspect]
     Active Substance: TOCILIZUMAB
     Route: 042
     Dates: start: 20170710
  5. ACTEMRA [Suspect]
     Active Substance: TOCILIZUMAB
     Indication: Rheumatoid arthritis
     Route: 058
     Dates: start: 20170710
  6. ACTEMRA [Suspect]
     Active Substance: TOCILIZUMAB
     Route: 058
  7. PREDNISONE [Concomitant]
     Active Substance: PREDNISONE
  8. ATENOLOL [Concomitant]
     Active Substance: ATENOLOL
     Indication: Supraventricular tachycardia
  9. PREVACID [Concomitant]
     Active Substance: LANSOPRAZOLE
  10. ACETAMINOPHEN\TRAMADOL [Concomitant]
     Active Substance: ACETAMINOPHEN\TRAMADOL
  11. CURCUMIN [Concomitant]
     Active Substance: CURCUMIN
  12. NAPROXEN [Concomitant]
     Active Substance: NAPROXEN

REACTIONS (38)
  - Abdominal pain [Not Recovered/Not Resolved]
  - Muscle spasms [Not Recovered/Not Resolved]
  - Colitis [Recovering/Resolving]
  - Gastroenteritis [Unknown]
  - Glomerular filtration rate decreased [Unknown]
  - Blood creatinine increased [Unknown]
  - Formication [Recovered/Resolved]
  - Serum ferritin decreased [Unknown]
  - Cough [Unknown]
  - Infusion related reaction [Unknown]
  - Tooth disorder [Unknown]
  - Nasopharyngitis [Recovering/Resolving]
  - Animal scratch [Not Recovered/Not Resolved]
  - Scratch [Not Recovered/Not Resolved]
  - Limb injury [Not Recovered/Not Resolved]
  - Lower respiratory tract infection [Not Recovered/Not Resolved]
  - Weight increased [Not Recovered/Not Resolved]
  - H1N1 influenza [Recovering/Resolving]
  - Dysphonia [Not Recovered/Not Resolved]
  - Blood pressure increased [Unknown]
  - Rheumatoid arthritis [Not Recovered/Not Resolved]
  - Vulvovaginal mycotic infection [Unknown]
  - Nasopharyngitis [Recovered/Resolved]
  - Aphthous ulcer [Recovering/Resolving]
  - Immunosuppression [Unknown]
  - Oral candidiasis [Unknown]
  - Fungal infection [Unknown]
  - Malaise [Unknown]
  - Abdominal discomfort [Unknown]
  - Rheumatoid arthritis [Unknown]
  - Musculoskeletal stiffness [Unknown]
  - Inflammation [Unknown]
  - Viral upper respiratory tract infection [Unknown]
  - Pain [Unknown]
  - Ankle fracture [Unknown]
  - Mobility decreased [Unknown]
  - Neutrophil count decreased [Recovering/Resolving]
  - Enteritis infectious [Unknown]

NARRATIVE: CASE EVENT DATE: 20140827
